FAERS Safety Report 8610224-5 (Version None)
Quarter: 2012Q3

REPORT INFORMATION
  Report Type: 
  Country: None (occurrence: None)
  Receive Date: 20120822
  Receipt Date: 20120810
  Transmission Date: 20120928
  Serious: Yes (Death)
  Sender: FDA-Public Use
  Company Number: DE-BRISTOL-MYERS SQUIBB COMPANY-16857070

PATIENT
  Age: 63 Year
  Sex: Male

DRUGS (3)
  1. CARBOPLATIN [Suspect]
     Indication: HEAD AND NECK CANCER
     Dosage: RECENT DOSE:20APR12
     Route: 042
     Dates: start: 20120305, end: 20120420
  2. FLUOROURACIL [Suspect]
     Indication: HEAD AND NECK CANCER
     Dosage: RECENT DOSE:16APR12
     Route: 042
     Dates: start: 20120305, end: 20120420
  3. CETUXIMAB [Suspect]
     Indication: HEAD AND NECK CANCER
     Dosage: 400MG/M2:05MAR12-UNK, 250MG/M2:UNK-16APR12. RECENT DOSE:16APR12
     Route: 042
     Dates: start: 20120305

REACTIONS (1)
  - CIRCULATORY COLLAPSE [None]
